FAERS Safety Report 6324109-0 (Version None)
Quarter: 2009Q3

REPORT INFORMATION
  Report Type: 
  Country: None (occurrence: None)
  Receive Date: 20090824
  Receipt Date: 20090421
  Transmission Date: 20100115
  Serious: No
  Sender: FDA-Public Use
  Company Number: US-ABBOTT-09P-163-0569562-00

PATIENT
  Sex: Female
  Weight: 90.8 kg

DRUGS (7)
  1. NIASPAN [Suspect]
     Indication: LOW DENSITY LIPOPROTEIN INCREASED
     Route: 048
     Dates: start: 20090201, end: 20090301
  2. NIASPAN [Suspect]
     Dosage: 1 IN 1 DAY QHS
     Route: 048
     Dates: start: 20090301, end: 20090418
  3. METOPROLOL [Concomitant]
     Indication: HYPERTENSION
     Dosage: 1/2 TABLET BID
     Route: 048
  4. FUROSEMIDE [Concomitant]
     Indication: DIURETIC THERAPY
     Dosage: 1 IN 1 DAY, EXCEPT ON SUNDAYS
     Route: 048
  5. CHLORCON [Concomitant]
     Indication: MINERAL SUPPLEMENTATION
     Route: 048
  6. ASPIRIN [Concomitant]
     Indication: PROPHYLAXIS
     Dosage: 1 IN 1 DAY AT BEDTIME
     Route: 048
     Dates: start: 20090201, end: 20090301
  7. ASPIRIN [Concomitant]
     Dosage: 1 IN 1 DAY AT BEDTIME
     Route: 048
     Dates: start: 20090301

REACTIONS (3)
  - FLUSHING [None]
  - MYALGIA [None]
  - VISUAL IMPAIRMENT [None]
